FAERS Safety Report 4438973-3 (Version None)
Quarter: 2004Q3

REPORT INFORMATION
  Report Type: 
  Country: None (occurrence: None)
  Receive Date: 20040830
  Receipt Date: 20040816
  Transmission Date: 20050211
  Serious: Yes (Other)
  Sender: FDA-Public Use
  Company Number: 2004052549

PATIENT
  Age: 84 Year
  Sex: Female
  Weight: 50 kg

DRUGS (3)
  1. PHENYTOIN SODIUM [Suspect]
     Indication: ILL-DEFINED DISORDER
     Dosage: 250 MG,ORAL
     Route: 048
  2. ASPIRIN [Concomitant]
  3. LOSARTAN (LOSARTAN) [Concomitant]

REACTIONS (1)
  - HYPONATRAEMIA [None]
